FAERS Safety Report 10565812 (Version 3)
Quarter: 2015Q1

REPORT INFORMATION
  Report Type: Report from Study
  Country: JP (occurrence: JP)
  Receive Date: 20141105
  Receipt Date: 20150217
  Transmission Date: 20150720
  Serious: Yes (Death, Hospitalization)
  Sender: FDA-Public Use
  Company Number: JP-AMGEN-JPNSP2014085472

PATIENT
  Age: 83 Year
  Sex: Female
  Weight: 47 kg

DRUGS (5)
  1. NEXIUM [Concomitant]
     Active Substance: ESOMEPRAZOLE MAGNESIUM
     Dosage: 20 MG, UNK
     Route: 048
     Dates: start: 20141010
  2. BAKTAR [Concomitant]
     Active Substance: SULFAMETHOXAZOLE\TRIMETHOPRIM
     Dosage: 40 MG, UNK
     Route: 048
     Dates: start: 20141010
  3. ROMIPLOSTIM - KHK [Suspect]
     Active Substance: ROMIPLOSTIM
     Indication: PRODUCT USED FOR UNKNOWN INDICATION
     Dosage: UNK
     Route: 065
  4. MEDROL [Concomitant]
     Active Substance: METHYLPREDNISOLONE
     Dosage: 12 MG, UNK
     Route: 065
     Dates: start: 20141010
  5. DAIKENCHUTO [Concomitant]
     Active Substance: HERBALS
     Dosage: 7.5 G, UNK
     Route: 048
     Dates: start: 20141010

REACTIONS (4)
  - Blood beta-D-glucan increased [Not Recovered/Not Resolved]
  - Aplastic anaemia [Fatal]
  - Pneumonia aspiration [Fatal]
  - Ischaemic hepatitis [Recovering/Resolving]

NARRATIVE: CASE EVENT DATE: 20141005
